FAERS Safety Report 20451200 (Version 1)
Quarter: 2022Q1

REPORT INFORMATION
  Report Type: Report from Study
  Country: TH (occurrence: TH)
  Receive Date: 20220209
  Receipt Date: 20220209
  Transmission Date: 20220423
  Serious: Yes (Hospitalization, Other)
  Sender: FDA-Public Use
  Company Number: TH-BAYER-2022A019633

PATIENT
  Age: 52 Year
  Sex: Female

DRUGS (1)
  1. STIVARGA [Suspect]
     Active Substance: REGORAFENIB
     Indication: Colorectal cancer
     Dosage: 80 MG, QD
     Route: 048

REACTIONS (11)
  - Haemolysis [None]
  - Oxygen saturation decreased [Unknown]
  - Hepatitis [Unknown]
  - Hospitalisation [None]
  - Pallor [Unknown]
  - Dyspnoea [Unknown]
  - Heart rate increased [Unknown]
  - Hepatic pain [None]
  - Ocular icterus [None]
  - Eating disorder [None]
  - Off label use [None]
